FAERS Safety Report 7230761-8 (Version None)
Quarter: 2011Q1

REPORT INFORMATION
  Report Type: 
  Country: None (occurrence: None)
  Receive Date: 20110118
  Receipt Date: 20110112
  Transmission Date: 20110831
  Serious: Yes (Death)
  Sender: FDA-Public Use
  Company Number: PHHY2011FR02468

PATIENT
  Age: 1 Year
  Sex: Male

DRUGS (1)
  1. SIMULECT [Suspect]
     Indication: RENAL TRANSPLANT
     Dosage: 20 MG, ONCE/SINGLE
     Route: 042
     Dates: start: 20101223

REACTIONS (4)
  - CARDIOPULMONARY FAILURE [None]
  - NEUTROPHIL COUNT INCREASED [None]
  - BRONCHOPNEUMOPATHY [None]
  - BRONCHOSPASM [None]
